FAERS Safety Report 15436730 (Version 2)
Quarter: 2018Q4

REPORT INFORMATION
  Report Type: Not Available
  Country: US (occurrence: US)
  Receive Date: 20180927
  Receipt Date: 20181126
  Transmission Date: 20190204
  Serious: Yes (Hospitalization)
  Sender: FDA-Public Use
  Company Number: US-NEUROCRINE BIOSCIENCES INC.-2018NBI02874

PATIENT
  Age: 37 Year
  Sex: Female

DRUGS (2)
  1. INGREZZA [Suspect]
     Active Substance: VALBENAZINE
     Indication: TARDIVE DYSKINESIA
     Route: 048
     Dates: start: 20180725, end: 20180802
  2. INGREZZA [Suspect]
     Active Substance: VALBENAZINE
     Dosage: DURING HOSPITALIZATION INGREZZA WAS DISCONTINUED (20-AUG TO 28-AUG)
     Route: 048
     Dates: start: 20180802

REACTIONS (1)
  - Suicidal ideation [Unknown]

NARRATIVE: CASE EVENT DATE: 201808
